FAERS Safety Report 5994018-5 (Version None)
Quarter: 2008Q4

REPORT INFORMATION
  Report Type: 
  Country: None (occurrence: None)
  Receive Date: 20081212
  Receipt Date: 20081017
  Transmission Date: 20090506
  Serious: No
  Sender: FDA-Public Use
  Company Number: US-ABBOTT-08P-163-0470869-00

PATIENT
  Sex: Male
  Weight: 87.622 kg

DRUGS (44)
  1. HUMIRA [Suspect]
     Indication: CROHN'S DISEASE
     Dates: start: 20080627, end: 20080627
  2. HUMIRA [Suspect]
     Dates: start: 20080711, end: 20080711
  3. HUMIRA [Suspect]
     Dosage: FOR NINE WEEKS AFTER QOW
     Dates: start: 20080725
  4. ROSUVASTATIN [Concomitant]
     Indication: DRUG USE FOR UNKNOWN INDICATION
  5. WARFARIN SODIUM [Concomitant]
     Indication: DRUG USE FOR UNKNOWN INDICATION
     Dosage: LOWER DOSE THAN 5MG BID
     Dates: start: 20080425
  6. WARFARIN SODIUM [Concomitant]
     Dates: start: 20080418, end: 20080421
  7. WARFARIN SODIUM [Concomitant]
     Dosage: ADJUSTED WEEKLY/BI-WEEKLY ABOUT 24MG
  8. SOTALOL HCL [Concomitant]
     Indication: DRUG USE FOR UNKNOWN INDICATION
  9. FENOFIBRATE [Concomitant]
     Indication: BLOOD TRIGLYCERIDES
     Dosage: IN THE AM
  10. SULFASALAZINE [Concomitant]
     Indication: DRUG USE FOR UNKNOWN INDICATION
     Dosage: 500 MG (UNIT DOSE)
  11. LOPERAMIDE HCL [Concomitant]
     Indication: DIARRHOEA
     Dosage: 1-2 (UNIT DOSE)
  12. CYPROHEPTADINE HYDROCHLORIDE [Concomitant]
     Indication: DRUG USE FOR UNKNOWN INDICATION
     Dosage: TAKEN 2 HOUR AFTER BREAKFAST OR DAIRY PRODUCTS
  13. MERCAPTOPURINE [Concomitant]
     Indication: DRUG USE FOR UNKNOWN INDICATION
  14. MERCAPTOPURINE [Concomitant]
     Dates: start: 20080421, end: 20080429
  15. MERCAPTOPURINE [Concomitant]
     Dates: start: 20080218, end: 20080421
  16. MERCAPTOPURINE [Concomitant]
     Dates: end: 20080218
  17. ESOMEPRAZOLE MAGNESIUM [Concomitant]
     Indication: DRUG USE FOR UNKNOWN INDICATION
     Dosage: IN AM
  18. DIMETICONE, ACTIVATED [Concomitant]
     Indication: GASTROINTESTINAL SOUNDS ABNORMAL
     Dosage: 125MG OR } (UNIT DOSE) 2 OR 3
  19. BUPROPION HCL [Concomitant]
     Indication: DRUG USE FOR UNKNOWN INDICATION
     Dosage: IN THE AM + 6 PM
  20. VALPROATE SODIUM [Concomitant]
     Indication: DRUG USE FOR UNKNOWN INDICATION
     Dosage: 2 AM; 1 AFTERNOON@ 3P @ 10:30 OR BEDTIME
  21. FLUOXETINE [Concomitant]
     Indication: DRUG USE FOR UNKNOWN INDICATION
     Dosage: IN AM
  22. QUETIAPINE FUMARATE [Concomitant]
     Indication: INSOMNIA
     Dosage: 2 @ 1 HOUR BEFORE BEDTIME (50MG)
  23. ZOLPIDEM TARTRATE [Concomitant]
     Indication: DRUG USE FOR UNKNOWN INDICATION
     Dosage: IF SEROQUEL NOT WORK + CAN SLEEP 7OR }HRS
  24. LORAZEPAM [Concomitant]
     Indication: DRUG USE FOR UNKNOWN INDICATION
     Dosage: IN LIEU OF AMBIEN WHEN NEEDED
  25. FEXOFENADINE [Concomitant]
     Indication: DRUG USE FOR UNKNOWN INDICATION
     Dosage: GENERALLY FOR 10 DAYS REGIMEN
  26. MONTELUKAST SODIUM [Concomitant]
     Indication: DRUG USE FOR UNKNOWN INDICATION
     Dosage: IN AFTERNOON
  27. BECONASE AQ [Concomitant]
     Indication: DRUG USE FOR UNKNOWN INDICATION
     Dosage: 2 SPRAYS BOTH NOSTRIL IN PM
  28. SALINE SOLUTION SPRAY [Concomitant]
     Indication: DRUG USE FOR UNKNOWN INDICATION
     Dosage: GENERALLY BOTH NOSTRILS 2X AT LEAST BID
  29. FLUTICASONE PROPIONATE [Concomitant]
     Indication: DRUG USE FOR UNKNOWN INDICATION
     Dosage: 2 PUFFS BEFORE SINGING OR EXERCISE
  30. B I-PAP MACHINE [Concomitant]
     Indication: SLEEP APNOEA SYNDROME
     Dosage: NIGHTLY
  31. LATANOPROST [Concomitant]
     Indication: INTRAOCULAR PRESSURE TEST
     Dosage: 1 DROP IN EACH EYE
  32. WALGREEN NO ASPIRIN EXTRA STRENGTH [Concomitant]
     Indication: BACK PAIN
     Dosage: 500 MG (UNIT DOSE)
  33. WALGREEN NO ASPIRIN EXTRA STRENGTH [Concomitant]
     Indication: NECK PAIN
  34. TOLNAFTATE [Concomitant]
     Indication: HYPERHIDROSIS
  35. KETOCONAZOLE [Concomitant]
     Indication: DRUG USE FOR UNKNOWN INDICATION
     Dosage: 2% IN LIEU OF ZEASORB AREA IN LIEU OF ZEASORB
  36. BENZOYL PEROXIDE [Concomitant]
     Indication: ACNE
     Dosage: CREAMY WASH BEFORE BEDTIME
  37. CLINDAMYCIN HCL [Concomitant]
     Indication: ACNE
     Dosage: 1 % (UNIT DOSE) EVENING
  38. METRONIDAZOLE [Concomitant]
     Indication: ROSACEA
     Dosage: 1% (UNIT DOSE)
  39. HYDROCORTISONE [Concomitant]
     Indication: RASH
     Dosage: 2 1/2% (UNIT DOSE)
  40. QUINIDINE SULFATE [Concomitant]
     Indication: MUSCLE SPASMS
     Dosage: MAXIMUM OF 1 EVERY 12 HOUR
  41. ASMANEX TWISTHALER [Concomitant]
     Indication: DRUG USE FOR UNKNOWN INDICATION
     Dosage: 2 INHALES DAILY IN AM
  42. CIRRUS [Concomitant]
     Indication: DRUG USE FOR UNKNOWN INDICATION
     Dosage: GENERALLY 10 DAY REGIME
  43. LIDOCAINE [Concomitant]
     Indication: ARTHRALGIA
     Dosage: 1%
  44. ALBUTEROL SULFATE [Concomitant]
     Indication: DRUG USE FOR UNKNOWN INDICATION
     Dosage: 2 PUFFS PRIOR TO SINGING/EXERCISING

REACTIONS (4)
  - INJECTION SITE PAIN [None]
  - OROPHARYNGEAL PAIN [None]
  - PARAESTHESIA [None]
  - WEIGHT DECREASED [None]
